FAERS Safety Report 12698877 (Version 1)
Quarter: 2016Q3

REPORT INFORMATION
  Report Type: Spontaneous
  Country: US (occurrence: US)
  Receive Date: 20160830
  Receipt Date: 20160830
  Transmission Date: 20161109
  Serious: Yes (Other)
  Sender: FDA-Public Use
  Company Number: US-GLAXOSMITHKLINE-US2016124359

PATIENT
  Age: 46 Year
  Sex: Female

DRUGS (6)
  1. ALBUTEROL NEBULIZER [Concomitant]
     Active Substance: ALBUTEROL
  2. ADVAIR DISKUS [Suspect]
     Active Substance: FLUTICASONE PROPIONATE\SALMETEROL XINAFOATE
     Indication: ASTHMA
     Dosage: 1 PUFF(S), BID
     Route: 055
     Dates: start: 2000
  3. ADVAIR HFA [Suspect]
     Active Substance: FLUTICASONE PROPIONATE\SALMETEROL XINAFOATE
     Indication: ASTHMA
     Dosage: UNK
     Dates: start: 201204
  4. CLARITIN [Concomitant]
     Active Substance: LORATADINE
  5. MEDROL DOSE PACK [Concomitant]
     Active Substance: METHYLPREDNISOLONE
  6. PRO-AIR (FLUTICASONE PROPIONATE) [Concomitant]

REACTIONS (14)
  - Cataract [Unknown]
  - Dyspnoea [Unknown]
  - Visual field defect [Unknown]
  - Hospitalisation [Unknown]
  - Eye injury [Unknown]
  - Throat irritation [Unknown]
  - Retinitis pigmentosa [Unknown]
  - Condition aggravated [Unknown]
  - Drug ineffective [Unknown]
  - Pruritus [Unknown]
  - Hypersensitivity [Unknown]
  - Malaise [Unknown]
  - Visual impairment [Unknown]
  - Eye infection [Unknown]

NARRATIVE: CASE EVENT DATE: 201204
